FAERS Safety Report 17912493 (Version 3)
Quarter: 2021Q2

REPORT INFORMATION
  Report Type: Spontaneous
  Country: JP (occurrence: JP)
  Receive Date: 20200618
  Receipt Date: 20210628
  Transmission Date: 20210717
  Serious: Yes (Hospitalization, Other)
  Sender: FDA-Public Use
  Company Number: JP-TEVA-2020-JP-1510572

PATIENT
  Age: 69 Year
  Sex: Male
  Weight: 66.5 kg

DRUGS (3)
  1. RABEPRAZOLE [Suspect]
     Active Substance: RABEPRAZOLE
     Route: 048
     Dates: start: 2012
  2. CILOSTAZOL. [Suspect]
     Active Substance: CILOSTAZOL
     Indication: CEREBRAL INFARCTION
     Route: 048
     Dates: start: 201306
  3. RABEPRAZOLE [Suspect]
     Active Substance: RABEPRAZOLE
     Route: 048
     Dates: start: 2015

REACTIONS (4)
  - Haemorrhage [Recovering/Resolving]
  - Gastric mucosal hypertrophy [Recovered/Resolved]
  - Gastric polyps [Recovered/Resolved]
  - Obstruction gastric [Recovered/Resolved]

NARRATIVE: CASE EVENT DATE: 2015
